FAERS Safety Report 14149729 (Version 5)
Quarter: 2018Q1

REPORT INFORMATION
  Report Type: Spontaneous
  Country: BR (occurrence: BR)
  Receive Date: 20171101
  Receipt Date: 20180116
  Transmission Date: 20180508
  Serious: Yes (Hospitalization, Other)
  Sender: FDA-Public Use
  Company Number: BR-ALEXION-A201711575

PATIENT
  Age: 20 Year
  Sex: Female

DRUGS (4)
  1. SOLIRIS [Suspect]
     Active Substance: ECULIZUMAB
     Dosage: 1400 MG, UNK
     Route: 065
  2. TACROLIMUS. [Concomitant]
     Active Substance: TACROLIMUS
     Indication: PRODUCT USED FOR UNKNOWN INDICATION
     Dosage: UNK
     Route: 065
  3. SOLIRIS [Suspect]
     Active Substance: ECULIZUMAB
     Indication: ATYPICAL HAEMOLYTIC URAEMIC SYNDROME
     Dosage: 900 MG, QW
     Route: 042
     Dates: start: 20141203, end: 20141224
  4. SOLIRIS [Suspect]
     Active Substance: ECULIZUMAB
     Dosage: 1200 MG, Q2W
     Route: 042
     Dates: start: 20141231

REACTIONS (9)
  - Poliovirus test positive [Unknown]
  - Thrombotic microangiopathy [Unknown]
  - Incorrect dose administered [Unknown]
  - Glomerulosclerosis [Unknown]
  - Renal impairment [Recovering/Resolving]
  - Blood creatinine increased [Unknown]
  - Transplant rejection [Not Recovered/Not Resolved]
  - Adverse event [Unknown]
  - Proteinuria [Unknown]

NARRATIVE: CASE EVENT DATE: 20171205
